FAERS Safety Report 24637381 (Version 2)
Quarter: 2024Q4

REPORT INFORMATION
  Report Type: Spontaneous
  Country: US (occurrence: US)
  Receive Date: 20241119
  Receipt Date: 20241125
  Transmission Date: 20250115
  Serious: No
  Sender: ROCHE
  Company Number: US-ROCHE-10000134551

PATIENT
  Sex: Female

DRUGS (3)
  1. XOLAIR PFS [Suspect]
     Active Substance: OMALIZUMAB
     Indication: Asthma
     Dosage: STRENGTH: 150 MG/ML
     Route: 058
     Dates: start: 202006
  2. XOLAIR PFS [Suspect]
     Active Substance: OMALIZUMAB
  3. MIRENA IUD SYS [Concomitant]
     Indication: Intra-uterine contraceptive device insertion

REACTIONS (1)
  - Condition aggravated [Unknown]
